FAERS Safety Report 5988184-5 (Version None)
Quarter: 2008Q4

REPORT INFORMATION
  Report Type: 
  Country: None (occurrence: None)
  Receive Date: 20081204
  Receipt Date: 20081120
  Transmission Date: 20090506
  Serious: Yes (Hospitalization)
  Sender: FDA-Public Use
  Company Number: 2008003019

PATIENT
  Sex: Male

DRUGS (18)
  1. ERLOTINIB( ERLOTINIB) (TABLET) (ERLOTINIB [Suspect]
     Dosage: ORAL
     Route: 048
     Dates: end: 20081002
  2. ALBUTEROL [Concomitant]
  3. ASPIRIN [Concomitant]
  4. ATROVENT [Concomitant]
  5. DARVOCET-N 100 [Concomitant]
  6. DIOVAN HCT (CO-DIOVAN) [Concomitant]
  7. FOLIC ACID [Concomitant]
  8. HUMULIN (NOVOLIN 20/80) [Concomitant]
  9. LEVOTHYROXINE SODIUM [Concomitant]
  10. LIPITOR [Concomitant]
  11. LORAZEPAM [Concomitant]
  12. MULTI-VITAMIN [Concomitant]
  13. PRILOSEC [Concomitant]
  14. TESTOSTERONE [Concomitant]
  15. BENADRYL [Concomitant]
  16. VALTREX [Concomitant]
  17. TRAZODONE HCL [Concomitant]
  18. DOXYCYCLINE [Concomitant]

REACTIONS (2)
  - CEREBROVASCULAR ACCIDENT [None]
  - VISION BLURRED [None]
